FAERS Safety Report 11265822 (Version 1)
Quarter: 2015Q3

REPORT INFORMATION
  Report Type: Spontaneous
  Country: US (occurrence: US)
  Receive Date: 20150713
  Receipt Date: 20150713
  Transmission Date: 20151125
  Serious: Yes (Other)
  Sender: FDA-Public Use
  Company Number: US-TEVA-566683USA

PATIENT
  Sex: Female

DRUGS (1)
  1. ESOMEPRAZOLE [Suspect]
     Active Substance: ESOMEPRAZOLE
     Indication: GASTROOESOPHAGEAL REFLUX DISEASE
     Route: 065
     Dates: start: 20150313

REACTIONS (9)
  - Feeling abnormal [Unknown]
  - Malaise [Unknown]
  - Adrenal disorder [Unknown]
  - Blood pressure fluctuation [Unknown]
  - Hyperhidrosis [Unknown]
  - Confusional state [Unknown]
  - Hypertension [Unknown]
  - Chest discomfort [Unknown]
  - Drug ineffective [Unknown]

NARRATIVE: CASE EVENT DATE: 2015
